FAERS Safety Report 6831917-6 (Version None)
Quarter: 2010Q3

REPORT INFORMATION
  Report Type: 
  Country: None (occurrence: None)
  Receive Date: 20100712
  Receipt Date: 20100705
  Transmission Date: 20110219
  Serious: Yes (Hospitalization)
  Sender: FDA-Public Use
  Company Number: JP-MERCK-1004USA03471

PATIENT
  Age: 74 Year
  Sex: Male
  Weight: 46 kg

DRUGS (6)
  1. JANUVIA [Suspect]
     Indication: TYPE 2 DIABETES MELLITUS
     Route: 048
     Dates: start: 20100225, end: 20100414
  2. GASMOTIN [Concomitant]
     Route: 065
  3. PARIET [Concomitant]
     Route: 065
  4. ECARD HD [Concomitant]
     Route: 065
  5. ALDACTONE [Concomitant]
     Route: 065
  6. LICKLE [Concomitant]
     Route: 065

REACTIONS (1)
  - HYPOGLYCAEMIA [None]
